FAERS Safety Report 7252910-8 (Version None)
Quarter: 2011Q1

REPORT INFORMATION
  Report Type: 
  Country: None (occurrence: None)
  Receive Date: 20110129
  Receipt Date: 20100302
  Transmission Date: 20110831
  Serious: No
  Sender: FDA-Public Use
  Company Number: US-ABBOTT-10P-163-0629706-00

PATIENT
  Sex: Female
  Weight: 61.29 kg

DRUGS (7)
  1. METHOTREXATE [Concomitant]
     Indication: RHEUMATOID ARTHRITIS
  2. HUMIRA [Suspect]
     Indication: RHEUMATOID ARTHRITIS
     Dosage: OCCASIONALLY HUMIRA PEN
     Dates: start: 20080101, end: 20090701
  3. ACYCLOVIR [Concomitant]
     Indication: ORAL HERPES
  4. HUMIRA [Suspect]
     Dates: start: 20100101
  5. TRAMADOL HCL [Concomitant]
     Indication: RHEUMATOID ARTHRITIS
  6. IBUPROFEN [Concomitant]
     Indication: PAIN
  7. NAPROXEN [Concomitant]
     Indication: RHEUMATOID ARTHRITIS

REACTIONS (9)
  - SENSORY DISTURBANCE [None]
  - BLOOD GLUCOSE INCREASED [None]
  - RHINORRHOEA [None]
  - HEADACHE [None]
  - NECK PAIN [None]
  - RHINALGIA [None]
  - NASOPHARYNGITIS [None]
  - RHEUMATOID ARTHRITIS [None]
  - NASAL OEDEMA [None]
